FAERS Safety Report 17468256 (Version 1)
Quarter: 2020Q1

REPORT INFORMATION
  Report Type: Spontaneous
  Country: US (occurrence: US)
  Receive Date: 20200227
  Receipt Date: 20200227
  Transmission Date: 20200409
  Serious: No
  Sender: FDA-Public Use
  Company Number: US-BAYER-2020-035059

PATIENT
  Age: 53 Year
  Sex: Female

DRUGS (2)
  1. MIRENA [Suspect]
     Active Substance: LEVONORGESTREL
     Indication: DYSMENORRHOEA
     Dosage: 20 ?G PER DAY, CONT
     Route: 015
     Dates: start: 201603
  2. MIRENA [Suspect]
     Active Substance: LEVONORGESTREL
     Indication: DYSMENORRHOEA
     Dosage: 20 ?G PER DAY CONTINUOUSLY
     Route: 015

REACTIONS (2)
  - Feeling hot [None]
  - Menstrual disorder [None]

NARRATIVE: CASE EVENT DATE: 201912
